FAERS Safety Report 4637600-X (Version None)
Quarter: 2005Q2

REPORT INFORMATION
  Report Type: 
  Country: None (occurrence: None)
  Receive Date: 20050325
  Receipt Date: 20041208
  Transmission Date: 20051028
  Serious: No
  Sender: FDA-Public Use
  Company Number: USA041184797

PATIENT
  Age: 56 Year
  Sex: Female

DRUGS (2)
  1. FORTEO [Suspect]
     Indication: BONE DENSITY DECREASED
     Dates: start: 20041124
  2. FORTEO [Suspect]
     Indication: OSTEOPOROSIS
     Dates: start: 20041124

REACTIONS (2)
  - DYSGEUSIA [None]
  - INJECTION SITE ERYTHEMA [None]
